FAERS Safety Report 8773301 (Version 2)
Quarter: 2013Q1

REPORT INFORMATION
  Report Type: Spontaneous
  Country: US (occurrence: US)
  Receive Date: 20120907
  Receipt Date: 20130124
  Transmission Date: 20140127
  Serious: Yes (Death, Hospitalization, Other)
  Sender: FDA-Public Use
  Company Number: US-BAYER-2012-092146

PATIENT
  Age: 25 Year
  Sex: Female
  Weight: 58.96 kg

DRUGS (2)
  1. YAZ [Suspect]
     Dosage: UNK
     Dates: end: 20091231
  2. YASMIN [Suspect]
     Dosage: UNK

REACTIONS (11)
  - Thrombophlebitis superficial [None]
  - Mitral valve disease [None]
  - Thrombosis [Fatal]
  - Muscle strain [None]
  - Emotional distress [None]
  - Injury [None]
  - Back pain [None]
  - Back pain [None]
  - Anxiety [None]
  - Psychological trauma [None]
  - Pain [None]
